FAERS Safety Report 23958649 (Version 3)
Quarter: 2024Q2

REPORT INFORMATION
  Report Type: Spontaneous
  Country: JP (occurrence: JP)
  Receive Date: 20240610
  Receipt Date: 20240625
  Transmission Date: 20240716
  Serious: Yes (Other)
  Sender: FDA-Public Use
  Company Number: JP-NOVOPROD-1228412

PATIENT
  Age: 70 Year
  Sex: Male

DRUGS (5)
  1. RYBELSUS [Suspect]
     Active Substance: SEMAGLUTIDE
     Indication: Type 2 diabetes mellitus
     Dosage: 7 MG, QD
     Route: 048
     Dates: start: 202211, end: 20240424
  2. LUSEOGLIFLOZIN [Concomitant]
     Active Substance: LUSEOGLIFLOZIN
     Indication: Product used for unknown indication
     Dosage: UNK
     Route: 048
  3. DICLOFENAC SODIUM [Concomitant]
     Active Substance: DICLOFENAC\DICLOFENAC SODIUM
     Indication: Product used for unknown indication
     Dosage: UNK
  4. FAMOTIDINE [Concomitant]
     Active Substance: FAMOTIDINE
     Indication: Product used for unknown indication
     Dosage: UNK
  5. AMLODIPINE BESYLATE\TELMISARTAN [Concomitant]
     Active Substance: AMLODIPINE BESYLATE\TELMISARTAN
     Indication: Product used for unknown indication
     Dosage: UNK
     Route: 048

REACTIONS (1)
  - Autoimmune pancreatitis [Recovering/Resolving]

NARRATIVE: CASE EVENT DATE: 20240301
